FAERS Safety Report 5449624-3 (Version None)
Quarter: 2007Q3

REPORT INFORMATION
  Report Type: 
  Country: None (occurrence: None)
  Receive Date: 20070912
  Receipt Date: 20070904
  Transmission Date: 20080115
  Serious: Yes (Other)
  Sender: FDA-Public Use
  Company Number: PHBS2007JP13406

PATIENT
  Sex: Female

DRUGS (5)
  1. HYDERGINE [Suspect]
     Dosage: UNK, UNK
     Route: 048
  2. METOPROLOL TARTRATE [Concomitant]
     Dosage: 20 MG, UNK
  3. ERISPAN [Concomitant]
     Dosage: 0.25 MG, UNK
  4. METHYCOBAL [Concomitant]
     Dosage: 0.5 MG, UNK
  5. DRUG THERAPY NOS [Concomitant]

REACTIONS (1)
  - RETINAL HAEMORRHAGE [None]
